FAERS Safety Report 18156492 (Version 1)
Quarter: 2020Q3

REPORT INFORMATION
  Report Type: Spontaneous
  Country: US (occurrence: US)
  Receive Date: 20200814
  Receipt Date: 20200814
  Transmission Date: 20201103
  Serious: Yes (Hospitalization, Other)
  Sender: FDA-Public Use
  Company Number: None

PATIENT
  Age: 47 Year
  Sex: Male
  Weight: 87.75 kg

DRUGS (3)
  1. SP RESEARCH PRODUCT MASS RESEARCH (VOSILASARM SARMS) [Suspect]
     Active Substance: DIETARY SUPPLEMENT\VOSILASARM
     Indication: EXERCISE ADEQUATE
     Dosage: ?          QUANTITY:1 TEASPOON(S);?
     Route: 048
  2. AMBIEN [Concomitant]
     Active Substance: ZOLPIDEM TARTRATE
  3. LORAZOPAM [Concomitant]

REACTIONS (6)
  - Anxiety [None]
  - Tachycardia [None]
  - Hypertension [None]
  - Stress [None]
  - Cerebrovascular accident [None]
  - Insomnia [None]

NARRATIVE: CASE EVENT DATE: 20200813
